FAERS Safety Report 22385266 (Version 2)
Quarter: 2023Q2

REPORT INFORMATION
  Report Type: Spontaneous
  Country: FR (occurrence: FR)
  Receive Date: 20230530
  Receipt Date: 20230601
  Transmission Date: 20230722
  Serious: Yes (Death)
  Sender: FDA-Public Use
  Company Number: FR-MYLANLABS-2023M1054858

PATIENT
  Sex: Male

DRUGS (3)
  1. PHENYTOIN [Suspect]
     Active Substance: PHENYTOIN
     Indication: Neonatal seizure
     Dosage: UNK
     Route: 065
  2. LEVETIRACETAM [Suspect]
     Active Substance: LEVETIRACETAM
     Indication: Neonatal seizure
     Dosage: UNK
     Route: 065
  3. CLONAZEPAM [Suspect]
     Active Substance: CLONAZEPAM
     Indication: Neonatal seizure
     Dosage: UNK
     Route: 065

REACTIONS (1)
  - Drug ineffective [Fatal]
